FAERS Safety Report 7360238-0 (Version None)
Quarter: 2011Q1

REPORT INFORMATION
  Report Type: 
  Country: None (occurrence: None)
  Receive Date: 20110307
  Receipt Date: 20110222
  Transmission Date: 20110831
  Serious: Yes (Death, Hospitalization, Other)
  Sender: FDA-Public Use
  Company Number: ACO_21903_2011

PATIENT
  Age: 69 Year
  Sex: Female

DRUGS (3)
  1. AMPYRA [Suspect]
     Indication: MULTIPLE SCLEROSIS
     Dosage: 10MG, EVERY NIGHT FOR 1 WEEK, ORAL; 10 MG, BID, ORAL
     Route: 048
     Dates: end: 20100101
  2. AMPYRA [Suspect]
     Indication: MULTIPLE SCLEROSIS
     Dosage: 10MG, EVERY NIGHT FOR 1 WEEK, ORAL; 10 MG, BID, ORAL
     Route: 048
     Dates: start: 20100601, end: 20100101
  3. COPAXONE [Concomitant]

REACTIONS (2)
  - INAPPROPRIATE SCHEDULE OF DRUG ADMINISTRATION [None]
  - UROSEPSIS [None]
